FAERS Safety Report 24305975 (Version 4)
Quarter: 2025Q1

REPORT INFORMATION
  Report Type: Report from Study
  Country: US (occurrence: US)
  Receive Date: 20240911
  Receipt Date: 20250320
  Transmission Date: 20250408
  Serious: Yes (Other)
  Sender: TAKEDA
  Company Number: US-TAKEDA-2024TUS038603

PATIENT
  Sex: Male

DRUGS (2)
  1. MARIBAVIR [Suspect]
     Active Substance: MARIBAVIR
     Indication: Cytomegalovirus infection
     Dosage: 400 MILLIGRAM, BID
     Dates: start: 20240321, end: 20240515
  2. MARIBAVIR [Suspect]
     Active Substance: MARIBAVIR
     Dosage: 400 MILLIGRAM, BID
     Dates: start: 20240530

REACTIONS (8)
  - Cytomegalovirus infection reactivation [Unknown]
  - Blood creatinine increased [Unknown]
  - Pollakiuria [Unknown]
  - Haemoglobin abnormal [Unknown]
  - Anaemia [Unknown]
  - Taste disorder [Unknown]
  - Ageusia [Unknown]
  - Nausea [Unknown]
